FAERS Safety Report 9524285 (Version 1)
Quarter: 2013Q1

REPORT INFORMATION
  Report Type: Spontaneous
  Country: US (occurrence: None)
  Receive Date: 20130313
  Receipt Date: 20130313
  Transmission Date: 20140127
  Serious: No
  Sender: FDA-Public Use
  Company Number: 1000037412

PATIENT
  Age: 58 Year
  Sex: Female

DRUGS (6)
  1. SAVELLA [Suspect]
     Indication: FIBROMYALGIA
     Dosage: 12.5 MG (12.5 MG, 1 IN 1 D), ORAL
     Route: 048
     Dates: start: 20120725, end: 20120725
  2. NORVASC (AMLODIPINE BESILATE) (AMLODIPINE BESILATE) [Concomitant]
  3. DIOVAN (VALSARTAN) (VALSARTAN) [Concomitant]
  4. RANITIDINE (RANITIDINE) (RANITIDINE) [Concomitant]
  5. SULFASALAZINE (SULFASALAZINE) (SULFASALAZINE) [Concomitant]
  6. VALIUM (DIAZEPAM) (DIAZEPAM) [Concomitant]

REACTIONS (2)
  - Nausea [None]
  - Heart rate increased [None]
